FAERS Safety Report 4811960-9 (Version None)
Quarter: 2005Q4

REPORT INFORMATION
  Report Type: 
  Country: None (occurrence: None)
  Receive Date: 20051028
  Receipt Date: 20041020
  Transmission Date: 20060501
  Serious: No
  Sender: FDA-Public Use
  Company Number: US-GLAXOSMITHKLINE-A0530646A

PATIENT
  Age: 77 Year
  Sex: Female

DRUGS (6)
  1. ADVAIR DISKUS 100/50 [Suspect]
     Indication: ASTHMA
     Dosage: 100MCG TWICE PER DAY
     Route: 055
     Dates: start: 20031001
  2. SYNTHROID [Concomitant]
  3. CRESTOR [Concomitant]
  4. HYDROCODONE + HOMATROPINE SYRUP [Concomitant]
  5. DIOVAN [Concomitant]
  6. CELEBREX [Concomitant]

REACTIONS (1)
  - ILL-DEFINED DISORDER [None]
